FAERS Safety Report 10479539 (Version 1)
Quarter: 2014Q3

REPORT INFORMATION
  Report Type: Spontaneous
  Country: US (occurrence: None)
  Receive Date: 20140926
  Receipt Date: 20140926
  Transmission Date: 20150326
  Serious: Yes (Other)
  Sender: FDA-Public Use
  Company Number: None

PATIENT
  Age: 52 Year
  Sex: Female
  Weight: 117.03 kg

DRUGS (10)
  1. PRIMROSE OIL [Concomitant]
  2. MULTIVITAMIN [Concomitant]
     Active Substance: VITAMINS
  3. DULOXETINE [Suspect]
     Active Substance: DULOXETINE
     Indication: DEPRESSION
     Dosage: 60MG, 90, ONCE DAILY, BY MOUTH
     Route: 048
     Dates: start: 20140216, end: 20140314
  4. CRESTOR [Concomitant]
     Active Substance: ROSUVASTATIN CALCIUM
  5. PROAIR HFA [Concomitant]
     Active Substance: ALBUTEROL SULFATE
  6. COENZYME Q10 [Concomitant]
     Active Substance: UBIDECARENONE
  7. HCTZ [Concomitant]
     Active Substance: HYDROCHLOROTHIAZIDE
  8. DIOVAN [Concomitant]
     Active Substance: VALSARTAN
  9. FISH OIL [Concomitant]
     Active Substance: FISH OIL
  10. CYMBALTA [Concomitant]
     Active Substance: DULOXETINE HYDROCHLORIDE

REACTIONS (8)
  - Thinking abnormal [None]
  - Suicidal ideation [None]
  - Fatigue [None]
  - Dizziness [None]
  - Depressed mood [None]
  - Product substitution issue [None]
  - Hypersomnia [None]
  - Withdrawal syndrome [None]

NARRATIVE: CASE EVENT DATE: 20140228
